FAERS Safety Report 13025235 (Version 3)
Quarter: 2024Q1

REPORT INFORMATION
  Report Type: Other
  Country: JP (occurrence: JP)
  Receive Date: 20161214
  Receipt Date: 20240211
  Transmission Date: 20240409
  Serious: Yes (Death, Life-Threatening, Hospitalization)
  Sender: FDA-Public Use
  Company Number: JP-CHUGAI-A2016030617ROCHE

PATIENT
  Age: 66 Year
  Sex: Female
  Weight: 47.2 kg

DRUGS (22)
  1. RITUXAN [Suspect]
     Active Substance: RITUXIMAB
     Indication: Prophylaxis against transplant rejection
     Dosage: THE FRACTIONATION DOSE FREQUENCY IS UNCERTAIN. ?DOSE INTERVAL UNCERTAINTY
     Route: 041
     Dates: start: 20140401
  2. RITUXAN [Suspect]
     Active Substance: RITUXIMAB
     Route: 041
  3. CELLCEPT [Concomitant]
     Active Substance: MYCOPHENOLATE MOFETIL
     Indication: Hepatic cirrhosis
     Route: 048
     Dates: start: 20140328
  4. VELCADE [Concomitant]
     Active Substance: BORTEZOMIB
     Route: 065
     Dates: start: 20140508, end: 20140508
  5. VELCADE [Concomitant]
     Active Substance: BORTEZOMIB
     Route: 065
     Dates: start: 20140511, end: 20140511
  6. VELCADE [Concomitant]
     Active Substance: BORTEZOMIB
     Route: 065
     Dates: start: 20140515, end: 20140515
  7. VELCADE [Concomitant]
     Active Substance: BORTEZOMIB
     Route: 065
     Dates: start: 20140518, end: 20140518
  8. PROGRAF [Concomitant]
     Active Substance: TACROLIMUS
     Indication: Hepatic cirrhosis
     Route: 048
     Dates: start: 201301
  9. PROGRAF [Concomitant]
     Active Substance: TACROLIMUS
     Route: 048
  10. LORMETAZEPAM [Concomitant]
     Active Substance: LORMETAZEPAM
     Indication: Insomnia
     Route: 048
     Dates: start: 201301
  11. NEXIUM [Concomitant]
     Active Substance: ESOMEPRAZOLE MAGNESIUM
     Indication: Hepatic cirrhosis
     Route: 048
     Dates: start: 20130214
  12. AMLODIPINE [Concomitant]
     Active Substance: AMLODIPINE BESYLATE
     Indication: Hepatic cirrhosis
     Route: 048
     Dates: start: 20130228
  13. AMOXICILLIN [Concomitant]
     Active Substance: AMOXICILLIN
     Indication: Hepatic cirrhosis
     Route: 048
     Dates: start: 20130319
  14. URSO [Concomitant]
     Active Substance: URSODIOL
     Indication: Hepatic cirrhosis
     Route: 048
     Dates: start: 201304
  15. JANUVIA [Concomitant]
     Active Substance: SITAGLIPTIN PHOSPHATE
     Indication: Hepatic cirrhosis
     Route: 048
     Dates: start: 201401
  16. REBETOL [Concomitant]
     Active Substance: RIBAVIRIN
     Indication: Hepatic cirrhosis
     Route: 048
     Dates: start: 20140328, end: 20140403
  17. ICOSAPENT [Concomitant]
     Active Substance: ICOSAPENT
     Indication: Hepatic cirrhosis
     Route: 048
     Dates: start: 20140328, end: 20140403
  18. ALOSENN [Concomitant]
     Indication: Hepatic cirrhosis
     Route: 048
     Dates: start: 201401
  19. LEVEMIR [Concomitant]
     Active Substance: INSULIN DETEMIR
     Indication: Hepatic cirrhosis
     Dosage: DOSAGE IS UNCERTAIN.
     Route: 058
  20. IBUPROFEN [Concomitant]
     Active Substance: IBUPROFEN
     Dates: start: 20140401
  21. CHLORPHENIRAMINE MALEATE [Concomitant]
     Active Substance: CHLORPHENIRAMINE MALEATE
     Dates: start: 20140401
  22. CHLORPHENIRAMINE MALEATE [Concomitant]
     Active Substance: CHLORPHENIRAMINE MALEATE

REACTIONS (6)
  - Sepsis [Fatal]
  - Multiple organ dysfunction syndrome [Fatal]
  - Urinary tract infection [Not Recovered/Not Resolved]
  - Blood pressure decreased [Unknown]
  - Cytomegalovirus test positive [Recovered/Resolved]
  - Off label use [Unknown]

NARRATIVE: CASE EVENT DATE: 20140519
